FAERS Safety Report 20648490 (Version 1)
Quarter: 2022Q1

REPORT INFORMATION
  Report Type: Spontaneous
  Country: IT (occurrence: IT)
  Receive Date: 20220329
  Receipt Date: 20220329
  Transmission Date: 20220424
  Serious: Yes (Other)
  Sender: FDA-Public Use
  Company Number: None

PATIENT
  Age: 70 Year
  Sex: Female
  Weight: 49 kg

DRUGS (2)
  1. PACLITAXEL [Suspect]
     Active Substance: PACLITAXEL
     Indication: Breast cancer recurrent
     Route: 042
     Dates: start: 20220130, end: 20220130
  2. CARBOPLATIN [Concomitant]
     Active Substance: CARBOPLATIN
     Indication: Breast cancer recurrent
     Route: 042
     Dates: start: 20220130, end: 20220130

REACTIONS (5)
  - Administration site extravasation [Recovered/Resolved]
  - Presyncope [Recovered/Resolved]
  - Infusion site oedema [Recovered/Resolved]
  - Device dislocation [Unknown]
  - Infusion site pain [Recovered/Resolved]

NARRATIVE: CASE EVENT DATE: 20220130
